FAERS Safety Report 5231057-6 (Version None)
Quarter: 2007Q1

REPORT INFORMATION
  Report Type: 
  Country: None (occurrence: None)
  Receive Date: 20070206
  Receipt Date: 20070131
  Transmission Date: 20070707
  Serious: Yes (Other)
  Sender: FDA-Public Use
  Company Number: GB-GLAXOSMITHKLINE-B0383973A

PATIENT
  Sex: Female

DRUGS (6)
  1. PAROXETINE HYDROCHLORIDE [Suspect]
     Route: 065
     Dates: end: 20030101
  2. HRT [Concomitant]
     Route: 065
  3. UNSPECIFIED DRUGS [Concomitant]
     Route: 065
  4. LORAZEPAM [Concomitant]
     Route: 065
  5. EFFEXOR XR [Concomitant]
     Dosage: 75MG PER DAY
     Route: 065
  6. ZYPREXA [Concomitant]
     Dosage: 5MG PER DAY
     Route: 065

REACTIONS (5)
  - DRUG WITHDRAWAL SYNDROME [None]
  - MANIA [None]
  - MENTAL DISORDER [None]
  - NAUSEA [None]
  - PARAESTHESIA [None]
